FAERS Safety Report 24992852 (Version 1)
Quarter: 2025Q1

REPORT INFORMATION
  Report Type: Report from Study
  Country: AU (occurrence: AU)
  Receive Date: 20250221
  Receipt Date: 20250221
  Transmission Date: 20250409
  Serious: No
  Sender: ROCHE
  Company Number: AU-ROCHE-10000211284

PATIENT
  Sex: Male

DRUGS (1)
  1. OCREVUS [Suspect]
     Active Substance: OCRELIZUMAB
     Indication: Relapsing-remitting multiple sclerosis
     Dosage: THIS MAY ONLY BE A ONE OFF 1/2 DOSE
     Route: 040
     Dates: start: 20210808

REACTIONS (3)
  - COVID-19 [Not Recovered/Not Resolved]
  - T-lymphocyte count decreased [Not Recovered/Not Resolved]
  - B-lymphocyte count decreased [Not Recovered/Not Resolved]
